FAERS Safety Report 5034977-0 (Version None)
Quarter: 2006Q2

REPORT INFORMATION
  Report Type: 
  Country: None (occurrence: None)
  Receive Date: 20060519
  Receipt Date: 20060412
  Transmission Date: 20061013
  Serious: No
  Sender: FDA-Public Use
  Company Number: TPA2006A00654

PATIENT
  Sex: Male

DRUGS (2)
  1. ROZEREM [Suspect]
     Dosage: 8 MG, ONCE, PER ORAL
     Route: 048
     Dates: start: 20060101, end: 20060101
  2. MELATONIN (MELATONIN) (12 MILLIGRAM) [Concomitant]

REACTIONS (2)
  - MENTAL DISORDER [None]
  - NIGHTMARE [None]
